FAERS Safety Report 11333983 (Version 1)
Quarter: 2015Q3

REPORT INFORMATION
  Report Type: Spontaneous
  Country: US (occurrence: US)
  Receive Date: 20150803
  Receipt Date: 20150803
  Transmission Date: 20151125
  Serious: Yes (Hospitalization)
  Sender: FDA-Public Use
  Company Number: US-SA-2014SA102798

PATIENT
  Age: 92 Year
  Sex: Female

DRUGS (3)
  1. AMBIEN [Suspect]
     Active Substance: ZOLPIDEM TARTRATE
     Dosage: TAKEN FROM -10 YEARS, DOSE-USES 5 MG TABLETS BUT SOMETIMES TAKES 2 OR MORE TABLETS
     Route: 048
  2. ZOLPIDEM TARTRATE. [Suspect]
     Active Substance: ZOLPIDEM TARTRATE
     Route: 065
  3. ZOLPIDEM TARTRATE. [Suspect]
     Active Substance: ZOLPIDEM TARTRATE
     Route: 065

REACTIONS (3)
  - Wrist fracture [Unknown]
  - Loss of consciousness [Unknown]
  - Fall [Unknown]
